FAERS Safety Report 6849409-7 (Version None)
Quarter: 2010Q3

REPORT INFORMATION
  Report Type: 
  Country: None (occurrence: None)
  Receive Date: 20100716
  Receipt Date: 20070930
  Transmission Date: 20110219
  Serious: No
  Sender: FDA-Public Use
  Company Number: US-PFIZER INC-2007083157

PATIENT
  Sex: Female
  Weight: 55 kg

DRUGS (1)
  1. CHANTIX [Suspect]
     Indication: SMOKING CESSATION THERAPY
     Route: 048
     Dates: start: 20070921, end: 20070929

REACTIONS (4)
  - CHILLS [None]
  - DIZZINESS [None]
  - FEELING ABNORMAL [None]
  - NAUSEA [None]
